FAERS Safety Report 6227897-7 (Version None)
Quarter: 2009Q2

REPORT INFORMATION
  Report Type: 
  Country: None (occurrence: None)
  Receive Date: 20090612
  Receipt Date: 20090605
  Transmission Date: 20091009
  Serious: Yes (Hospitalization)
  Sender: FDA-Public Use
  Company Number: B0574271A

PATIENT
  Sex: Female

DRUGS (4)
  1. LAMICTAL [Suspect]
     Indication: EPILEPSY
     Dosage: 100MG TWICE PER DAY
     Route: 048
     Dates: start: 20090408, end: 20090430
  2. DEPAKENE [Suspect]
     Indication: EPILEPSY
     Dosage: 300MG TWICE PER DAY
     Route: 048
  3. UNKNOWN DRUG [Concomitant]
     Indication: EPILEPSY
     Dosage: 20MG PER DAY
     Route: 048
  4. SODIUM BROMIDE [Concomitant]
     Indication: EPILEPSY
     Dosage: 2G PER DAY
     Route: 048

REACTIONS (7)
  - DRUG ABUSE [None]
  - DRUG DEPENDENCE [None]
  - DRUG ERUPTION [None]
  - DRUG RASH WITH EOSINOPHILIA AND SYSTEMIC SYMPTOMS [None]
  - LIVER DISORDER [None]
  - PYREXIA [None]
  - RASH [None]
